FAERS Safety Report 12982192 (Version 8)
Quarter: 2017Q1

REPORT INFORMATION
  Report Type: Report from Study
  Country: GB (occurrence: GB)
  Receive Date: 20161129
  Receipt Date: 20170106
  Transmission Date: 20170428
  Serious: Yes (Hospitalization)
  Sender: FDA-Public Use
  Company Number: PHHO2016GB017063

PATIENT
  Age: 65 Year
  Sex: Male
  Weight: 91 kg

DRUGS (3)
  1. ENTRESTO [Suspect]
     Active Substance: SACUBITRIL\VALSARTAN
     Indication: CARDIAC FAILURE
     Dosage: 200 MG, BID
     Route: 048
     Dates: start: 20150310
  2. OMEPRAZOLE SANDOZ [Suspect]
     Active Substance: OMEPRAZOLE
     Indication: GASTROOESOPHAGEAL REFLUX DISEASE
     Dosage: 20 MG, QD (INTERMITTENT USE AS PER SUBJECT)
     Route: 048
     Dates: start: 20110117, end: 20160330
  3. OMEPRAZOLE SANDOZ [Suspect]
     Active Substance: OMEPRAZOLE
     Dosage: 80 MG, DIAL, OID
     Route: 048
     Dates: start: 20160330, end: 20161114

REACTIONS (2)
  - Hypocalcaemia [Recovered/Resolved]
  - Hypomagnesaemia [Recovered/Resolved with Sequelae]

NARRATIVE: CASE EVENT DATE: 20161114
